FAERS Safety Report 7961599-1 (Version None)
Quarter: 2011Q4

REPORT INFORMATION
  Report Type: 
  Country: None (occurrence: None)
  Receive Date: 20111207
  Receipt Date: 20111206
  Transmission Date: 20120403
  Serious: Yes (Death)
  Sender: FDA-Public Use
  Company Number: TW-SANOFI-AVENTIS-2011SA079671

PATIENT
  Sex: Male

DRUGS (3)
  1. TAXOTERE [Suspect]
     Route: 042
  2. TAXOTERE [Suspect]
     Indication: HEAD AND NECK CANCER
     Route: 042
  3. TAXOTERE [Suspect]
     Route: 042

REACTIONS (2)
  - PRODUCT QUALITY ISSUE [None]
  - DEATH [None]
